FAERS Safety Report 13177026 (Version 2)
Quarter: 2017Q3

REPORT INFORMATION
  Report Type: Report from Study
  Country: US (occurrence: US)
  Receive Date: 20170201
  Receipt Date: 20170731
  Transmission Date: 20171127
  Serious: No
  Sender: FDA-Public Use
  Company Number: US-EXELIXIS-CABO-16006899

PATIENT
  Sex: Male

DRUGS (8)
  1. SERTRALINE [Concomitant]
     Active Substance: SERTRALINE HYDROCHLORIDE
  2. CABOMETYX [Suspect]
     Active Substance: CABOZANTINIB S-MALATE
     Indication: RENAL CANCER
     Dosage: 60 MG, QD
     Route: 048
     Dates: start: 20160606
  3. OXYCODONE [Concomitant]
     Active Substance: OXYCODONE
  4. CABOMETYX [Suspect]
     Active Substance: CABOZANTINIB S-MALATE
     Dosage: 40 MG, QD
     Route: 048
     Dates: start: 201608
  5. FENTANYL. [Concomitant]
     Active Substance: FENTANYL
  6. ONDANSETRON [Concomitant]
     Active Substance: ONDANSETRON
  7. MEGESTROL [Concomitant]
     Active Substance: MEGESTROL
  8. ACETAMINOPHEN. [Concomitant]
     Active Substance: ACETAMINOPHEN

REACTIONS (1)
  - Mouth ulceration [Not Recovered/Not Resolved]
